FAERS Safety Report 15114806 (Version 2)
Quarter: 2018Q3

REPORT INFORMATION
  Report Type: Spontaneous
  Country: US (occurrence: US)
  Receive Date: 20180706
  Receipt Date: 20180813
  Transmission Date: 20181010
  Serious: No
  Sender: FDA-Public Use
  Company Number: US-ASTRAZENECA-2018SE77303

PATIENT
  Sex: Female

DRUGS (1)
  1. BYDUREON BCISE [Suspect]
     Active Substance: EXENATIDE
     Route: 065

REACTIONS (7)
  - Injection site haemorrhage [Unknown]
  - Hypoacusis [Unknown]
  - Intentional product misuse [Unknown]
  - Device issue [Unknown]
  - Abdominal discomfort [Unknown]
  - Device failure [Unknown]
  - Confusional state [Unknown]
